FAERS Safety Report 7999636-0 (Version None)
Quarter: 2011Q4

REPORT INFORMATION
  Report Type: 
  Country: None (occurrence: None)
  Receive Date: 20111221
  Receipt Date: 20111215
  Transmission Date: 20120403
  Serious: Yes (Hospitalization)
  Sender: FDA-Public Use
  Company Number: US-US-EMD SERONO, INC.-7008341

PATIENT
  Sex: Female
  Weight: 82 kg

DRUGS (7)
  1. REBIF [Suspect]
     Indication: MULTIPLE SCLEROSIS
     Route: 058
     Dates: start: 20010101, end: 20100101
  2. DETROL LA [Concomitant]
     Route: 048
  3. TRAZODONE HCL [Concomitant]
  4. TIZANIDINE HCL [Concomitant]
  5. BENAZEPRIL HYDROCHLORIDE [Concomitant]
     Indication: HYPERTENSION
  6. UNSPECIFIED MEDICATIONS [Concomitant]
  7. LYRICA [Concomitant]

REACTIONS (3)
  - MULTIPLE SCLEROSIS RELAPSE [None]
  - HEART RATE INCREASED [None]
  - HEADACHE [None]
